FAERS Safety Report 12893492 (Version 3)
Quarter: 2016Q4

REPORT INFORMATION
  Report Type: Report from Study
  Country: US (occurrence: US)
  Receive Date: 20161028
  Receipt Date: 20161214
  Transmission Date: 20170207
  Serious: Yes (Hospitalization, Other)
  Sender: FDA-Public Use
  Company Number: US-BAYER-2016-034847

PATIENT
  Age: 48 Year
  Sex: Female
  Weight: 56.69 kg

DRUGS (10)
  1. ADEMPAS [Suspect]
     Active Substance: RIOCIGUAT
     Indication: PULMONARY ARTERIAL HYPERTENSION
     Dosage: 2.5 MG, TID
     Route: 048
  2. ADEMPAS [Suspect]
     Active Substance: RIOCIGUAT
     Indication: PULMONARY ARTERIAL HYPERTENSION
     Dosage: 0.5 MG, TID
     Route: 048
  3. ADEMPAS [Suspect]
     Active Substance: RIOCIGUAT
     Indication: PULMONARY ARTERIAL HYPERTENSION
     Dosage: 2.5 MG, TID
     Route: 048
  4. ADEMPAS [Suspect]
     Active Substance: RIOCIGUAT
     Indication: PULMONARY ARTERIAL HYPERTENSION
     Dosage: UNK
     Dates: start: 20160309
  5. ADEMPAS [Suspect]
     Active Substance: RIOCIGUAT
     Indication: PULMONARY ARTERIAL HYPERTENSION
     Dosage: 1 MG, TID
     Route: 048
  6. XARELTO [Suspect]
     Active Substance: RIVAROXABAN
     Dosage: UNK
  7. ADEMPAS [Suspect]
     Active Substance: RIOCIGUAT
     Indication: PULMONARY ARTERIAL HYPERTENSION
     Dosage: UNK
     Dates: start: 201602
  8. ADEMPAS [Suspect]
     Active Substance: RIOCIGUAT
     Indication: PULMONARY ARTERIAL HYPERTENSION
     Dosage: 1.5 MG, TID
     Route: 048
     Dates: start: 20160309
  9. ADEMPAS [Suspect]
     Active Substance: RIOCIGUAT
     Indication: PULMONARY ARTERIAL HYPERTENSION
     Dosage: 2.5 MG, TID
     Route: 048
  10. ADEMPAS [Suspect]
     Active Substance: RIOCIGUAT
     Indication: PULMONARY ARTERIAL HYPERTENSION
     Dosage: 2 MG, TID
     Route: 048
     Dates: start: 20160309

REACTIONS (26)
  - Ascites [Not Recovered/Not Resolved]
  - Dizziness [Unknown]
  - Swelling [Unknown]
  - Nausea [Not Recovered/Not Resolved]
  - Fatigue [Not Recovered/Not Resolved]
  - Metrorrhagia [Unknown]
  - Back pain [Not Recovered/Not Resolved]
  - Uterine leiomyoma embolisation [None]
  - Cough [Unknown]
  - Cough [None]
  - Abnormal weight gain [Unknown]
  - Hypersensitivity [Unknown]
  - Oedema peripheral [Not Recovered/Not Resolved]
  - Cough [None]
  - Blood count abnormal [None]
  - Localised oedema [Unknown]
  - Musculoskeletal chest pain [None]
  - Headache [Unknown]
  - Muscle spasms [None]
  - Menorrhagia [Not Recovered/Not Resolved]
  - Dyspnoea [None]
  - Fluid retention [Unknown]
  - Oedema peripheral [Unknown]
  - Headache [Unknown]
  - Pain in extremity [None]
  - Weight increased [None]

NARRATIVE: CASE EVENT DATE: 201602
